FAERS Safety Report 8848638 (Version 2)
Quarter: 2012Q4

REPORT INFORMATION
  Report Type: 
  Country: US (occurrence: US)
  Receive Date: 20121018
  Receipt Date: 20121109
  Transmission Date: 20130627
  Serious: Yes (Other)
  Sender: FDA-Public Use
  Company Number: US-PFIZER INC-2012259510

PATIENT
  Age: 69 Year
  Sex: Female
  Weight: 56.7 kg

DRUGS (4)
  1. LYRICA [Suspect]
     Indication: NEUROPATHIC PAIN
     Dosage: 75 mg, 2x/day
     Route: 048
     Dates: start: 2006, end: 2006
  2. KLOR-CON [Concomitant]
     Indication: POTASSIUM LOW
     Dosage: 10 mEq, UNK
  3. PRAVASTATIN [Concomitant]
     Indication: CHOLESTEROL HIGH
     Dosage: 40 mg, UNK
  4. ATENOLOL/CHLORTHALIDONE [Concomitant]
     Indication: BLOOD PRESSURE HIGH
     Dosage: 50/25 mg, UNK

REACTIONS (1)
  - Cerebrovascular accident [Unknown]
